FAERS Safety Report 9516717 (Version 1)
Quarter: 2013Q3

REPORT INFORMATION
  Report Type: Spontaneous
  Country: US (occurrence: US)
  Receive Date: 20130911
  Receipt Date: 20130911
  Transmission Date: 20140515
  Serious: Yes (Hospitalization, Other)
  Sender: FDA-Public Use
  Company Number: US-ELI_LILLY_AND_COMPANY-US201309001461

PATIENT
  Age: 59 Year
  Sex: Female

DRUGS (9)
  1. FORTEO [Suspect]
     Indication: OSTEOPOROSIS
     Dosage: UNK, QD
     Dates: start: 201202
  2. PREDNISONE [Concomitant]
     Indication: CHRONIC OBSTRUCTIVE PULMONARY DISEASE
     Dosage: 20 MG, QD
  3. ALBUTEROL [Concomitant]
     Dosage: UNK, OTHER
  4. QVAR [Concomitant]
     Dosage: UNK, BID
  5. TEGRETOL [Concomitant]
     Dosage: 200 MG, BID
  6. XANAX [Concomitant]
     Dosage: UNK, PRN
  7. FOSAMAX [Concomitant]
     Indication: OSTEOPOROSIS
  8. EVISTA [Concomitant]
     Indication: OSTEOPOROSIS
  9. RECLAST [Concomitant]
     Indication: OSTEOPOROSIS

REACTIONS (9)
  - Chronic obstructive pulmonary disease [Unknown]
  - Neoplasm malignant [Unknown]
  - Musculoskeletal chest pain [Unknown]
  - Back pain [Unknown]
  - Arthralgia [Unknown]
  - Pain in extremity [Unknown]
  - Abasia [Unknown]
  - Drug withdrawal syndrome [Unknown]
  - Hepatic enzyme increased [Unknown]
